FAERS Safety Report 5531964-0 (Version None)
Quarter: 2007Q4

REPORT INFORMATION
  Report Type: 
  Country: None (occurrence: None)
  Receive Date: 20071203
  Receipt Date: 20071123
  Transmission Date: 20080405
  Serious: Yes (Hospitalization)
  Sender: FDA-Public Use
  Company Number: FR-ELI_LILLY_AND_COMPANY-FR200711002246

PATIENT
  Age: 68 Year
  Sex: Female
  Weight: 60 kg

DRUGS (7)
  1. FORTEO [Suspect]
     Indication: OSTEOPOROSIS
     Dosage: 20 UG, DAILY (1/D)
     Route: 048
     Dates: start: 20061106
  2. AOTAL [Concomitant]
     Indication: ALCOHOLISM
     Dosage: 6 D/F, DAILY (1/D)
  3. OXAZEPAM [Concomitant]
     Indication: ALCOHOL DETOXIFICATION
     Dosage: 1 D/F, DAILY (1/D)
  4. CELECTOL [Concomitant]
     Indication: TACHYCARDIA
     Dosage: 10 MG, DAILY (1/D)
     Route: 048
  5. ENALAPRIL [Concomitant]
     Indication: HYPERTENSION
     Dosage: 5 MG, DAILY (1/D)
     Route: 048
  6. SEROPRAM [Concomitant]
     Indication: DEPRESSION
     Dosage: 20 MG, DAILY (1/D)
     Route: 048
  7. VITAMIN B1 AND B6 [Concomitant]
     Indication: ALCOHOLISM
     Dosage: 3 D/F, DAILY (1/D)
     Route: 048

REACTIONS (2)
  - FALL [None]
  - HUMERUS FRACTURE [None]
